FAERS Safety Report 9405597 (Version 1)
Quarter: 2013Q3

REPORT INFORMATION
  Report Type: Spontaneous
  Country: NL (occurrence: NL)
  Receive Date: 20130717
  Receipt Date: 20130717
  Transmission Date: 20140515
  Serious: Yes (Hospitalization)
  Sender: FDA-Public Use
  Company Number: NL-009507513-1307NLD005714

PATIENT
  Age: 26 Year
  Sex: Female
  Weight: 65 kg

DRUGS (3)
  1. PROGLICEM [Suspect]
     Indication: NAUSEA
     Dosage: 4 TIMES PER 1 DAYS 1DF
     Route: 048
     Dates: start: 20120329, end: 20120404
  2. PROGLICEM [Suspect]
     Indication: HUNGER
  3. PROGLICEM [Suspect]
     Indication: MUSCLE SPASMS

REACTIONS (7)
  - Heart rate increased [Recovered/Resolved]
  - Dyskinesia [Recovered/Resolved]
  - Pyrexia [Recovered/Resolved]
  - Rash generalised [Recovered/Resolved]
  - Dyspnoea [Recovered/Resolved]
  - Malaise [Recovered/Resolved]
  - Fatigue [Recovered/Resolved]
